FAERS Safety Report 8547276-7 (Version None)
Quarter: 2012Q3

REPORT INFORMATION
  Report Type: 
  Country: None (occurrence: None)
  Receive Date: 20120727
  Receipt Date: 20120717
  Transmission Date: 20120928
  Serious: Yes (Hospitalization)
  Sender: FDA-Public Use
  Company Number: US-ASTRAZENECA-2010SE09915

PATIENT
  Age: 58 Year
  Sex: Female

DRUGS (4)
  1. MORPHINE SULFATE [Suspect]
     Route: 065
  2. TOPROL-XL [Suspect]
     Route: 048
  3. EFFEXOR [Concomitant]
  4. DIOVAN [Concomitant]

REACTIONS (5)
  - ACCIDENT [None]
  - DIZZINESS [None]
  - OVERDOSE [None]
  - DRUG HYPERSENSITIVITY [None]
  - BLOOD PRESSURE DECREASED [None]
